FAERS Safety Report 6535266-5 (Version None)
Quarter: 2010Q1

REPORT INFORMATION
  Report Type: 
  Country: None (occurrence: None)
  Receive Date: 20100113
  Receipt Date: 20100105
  Transmission Date: 20100710
  Serious: Yes (Hospitalization)
  Sender: FDA-Public Use
  Company Number: FR-ELI_LILLY_AND_COMPANY-FR200911004083

PATIENT
  Age: 76 Year
  Sex: Female
  Weight: 50 kg

DRUGS (8)
  1. FORTEO [Suspect]
     Indication: OSTEOPOROTIC FRACTURE
     Dosage: 20 UG, UNKNOWN
     Route: 058
     Dates: start: 20080107
  2. PREVISCAN [Concomitant]
     Indication: ARTERITIS
     Dosage: 0.75 D/F, DAILY (1/D)
     Route: 048
     Dates: start: 20050101
  3. AMIODARONE HCL [Concomitant]
     Indication: ARRHYTHMIA
     Dosage: 0.5 D/F, DAILY (1/D)
     Route: 048
     Dates: start: 20050101
  4. ALDACTONE [Concomitant]
     Indication: HYPERTENSION
     Dosage: 1 D/F, DAILY (1/D)
     Route: 048
     Dates: start: 20050101
  5. VASTEN [Concomitant]
     Dosage: 1 D/F, DAILY (1/D)
     Dates: start: 20050101, end: 20090501
  6. VALSARTAN AND HYDROCHLOROTHIAZIDE [Concomitant]
     Indication: HYPERTENSION
     Dosage: 1 D/F, DAILY (1/D)
     Route: 048
     Dates: start: 20050101
  7. UVEDOSE [Concomitant]
     Indication: VITAMIN D DEFICIENCY
     Dosage: 100000 IU, EVERY TWO MONTHS
     Route: 048
     Dates: start: 20050101
  8. PULMICORT [Concomitant]
     Dosage: UNK, UNKNOWN

REACTIONS (5)
  - EPISTAXIS [None]
  - FALL [None]
  - PELVIC FRACTURE [None]
  - SKULL FRACTURE [None]
  - WEIGHT INCREASED [None]
